FAERS Safety Report 9202090 (Version 2)
Quarter: 2013Q4

REPORT INFORMATION
  Report Type: Spontaneous
  Country: US (occurrence: US)
  Receive Date: 20130401
  Receipt Date: 20131127
  Transmission Date: 20140711
  Serious: Yes (Other)
  Sender: FDA-Public Use
  Company Number: US-BAYER-2013-038442

PATIENT
  Age: 30 Year
  Sex: Female

DRUGS (3)
  1. YAZ [Suspect]
  2. YASMIN [Suspect]
  3. OCELLA [Suspect]

REACTIONS (6)
  - Gallbladder injury [None]
  - Cholelithiasis [None]
  - Thrombosis [None]
  - Pain [None]
  - Injury [None]
  - Pain [None]
